FAERS Safety Report 7035391-9 (Version None)
Quarter: 2010Q4

REPORT INFORMATION
  Report Type: 
  Country: None (occurrence: None)
  Receive Date: 20101008
  Receipt Date: 20100922
  Transmission Date: 20110411
  Serious: Yes (Other)
  Sender: FDA-Public Use
  Company Number: PHHY2009CA49421

PATIENT
  Sex: Female
  Weight: 108.84 kg

DRUGS (5)
  1. GLEEVEC [Suspect]
     Indication: CHRONIC MYELOID LEUKAEMIA
     Dosage: 600 MG/DAY
     Route: 048
     Dates: start: 20070507, end: 20090730
  2. VITAMIN TAB [Concomitant]
  3. FENTANYL [Concomitant]
  4. ZOFRAN [Concomitant]
  5. LIDOCAINE [Concomitant]
     Route: 008

REACTIONS (2)
  - CAESAREAN SECTION [None]
  - DRUG EXPOSURE DURING PREGNANCY [None]
